FAERS Safety Report 10214276 (Version 1)
Quarter: 2014Q2

REPORT INFORMATION
  Report Type: Spontaneous
  Country: US (occurrence: US)
  Receive Date: 20140603
  Receipt Date: 20140603
  Transmission Date: 20141212
  Serious: No
  Sender: FDA-Public Use
  Company Number: US-PFIZER INC-2014151603

PATIENT
  Sex: Female

DRUGS (1)
  1. LYRICA [Suspect]
     Dosage: 75 MG, DAILY
     Dates: start: 201405, end: 2014

REACTIONS (2)
  - Disturbance in attention [Not Recovered/Not Resolved]
  - Dissociation [Not Recovered/Not Resolved]
